FAERS Safety Report 25450884 (Version 1)
Quarter: 2025Q2

REPORT INFORMATION
  Report Type: Other
  Country: NL (occurrence: GR)
  Receive Date: 20250618
  Receipt Date: 20250618
  Transmission Date: 20250717
  Serious: Yes (Disabling)
  Sender: KOWA PHARM
  Company Number: None

PATIENT

DRUGS (5)
  1. PITAVASTATIN [Suspect]
     Active Substance: PITAVASTATIN
     Indication: Dyslipidaemia
     Dosage: 1 DF, QD
     Route: 048
     Dates: start: 20221101, end: 20250603
  2. EZETIMIBE\ROSUVASTATIN CALCIUM [Suspect]
     Active Substance: EZETIMIBE\ROSUVASTATIN CALCIUM
     Indication: Dyslipidaemia
     Dosage: 1 DF, QD
     Route: 048
     Dates: start: 20221101, end: 20250603
  3. ATORVASTATIN CALCIUM [Suspect]
     Active Substance: ATORVASTATIN CALCIUM
     Indication: Dyslipidaemia
     Dosage: 1 DF, QD
     Route: 048
     Dates: start: 20221101, end: 20250603
  4. LIPTRUZET [Suspect]
     Active Substance: ATORVASTATIN CALCIUM\EZETIMIBE
     Indication: Dyslipidaemia
     Dosage: 1 DF, QD
     Route: 048
     Dates: start: 20221101, end: 20250603
  5. LEVOTHYROXINE [Concomitant]
     Active Substance: LEVOTHYROXINE
     Indication: Hypothyroidism
     Dosage: 1 DF, QD
     Route: 048
     Dates: start: 20230101

REACTIONS (3)
  - Muscle rigidity [Recovered/Resolved]
  - Myalgia [Recovered/Resolved]
  - Headache [Recovered/Resolved]
